FAERS Safety Report 23106704 (Version 1)
Quarter: 2023Q4

REPORT INFORMATION
  Report Type: Spontaneous
  Country: US (occurrence: US)
  Receive Date: 20231026
  Receipt Date: 20231026
  Transmission Date: 20240109
  Serious: No
  Sender: FDA-Public Use
  Company Number: US-SANOFI-01815277

PATIENT
  Age: 61 Year
  Sex: Male

DRUGS (3)
  1. TOUJEO MAX [Suspect]
     Active Substance: INSULIN GLARGINE
     Indication: Diabetes mellitus
     Dosage: 20 IU, QD
  2. TOUJEO MAX [Suspect]
     Active Substance: INSULIN GLARGINE
     Dosage: 30 IU, QD
  3. TOUJEO MAX [Suspect]
     Active Substance: INSULIN GLARGINE
     Dosage: 20 IU, QD

REACTIONS (2)
  - Glycosylated haemoglobin increased [Unknown]
  - Drug ineffective [Unknown]
